FAERS Safety Report 7545997-6 (Version None)
Quarter: 2011Q2

REPORT INFORMATION
  Report Type: 
  Country: None (occurrence: None)
  Receive Date: 20110614
  Receipt Date: 20110601
  Transmission Date: 20111010
  Serious: Yes (Other)
  Sender: FDA-Public Use
  Company Number: PHHY2011JP48807

PATIENT
  Sex: Female

DRUGS (1)
  1. CYCLOSPORINE [Suspect]

REACTIONS (1)
  - ANURIA [None]
